FAERS Safety Report 9417651 (Version 1)
Quarter: 2013Q3

REPORT INFORMATION
  Report Type: Spontaneous
  Country: US (occurrence: None)
  Receive Date: 20130722
  Receipt Date: 20130722
  Transmission Date: 20140515
  Serious: Yes (Hospitalization)
  Sender: FDA-Public Use
  Company Number: None

PATIENT
  Age: 63 Year
  Sex: Female
  Weight: 69.4 kg

DRUGS (4)
  1. BORTEZOMIB [Suspect]
     Indication: DIFFUSE LARGE B-CELL LYMPHOMA
     Route: 042
     Dates: start: 20130531, end: 20130705
  2. TEMSIROLIMUS [Suspect]
     Indication: DIFFUSE LARGE B-CELL LYMPHOMA
     Route: 042
     Dates: start: 20130531, end: 20130705
  3. ACYCLOVIR [Concomitant]
  4. WOUND DRESSING GEL (CURASOL) [Concomitant]

REACTIONS (4)
  - Pyrexia [None]
  - Hypokalaemia [None]
  - Impaired healing [None]
  - Thrombocytopenia [None]
